FAERS Safety Report 6181794-4 (Version None)
Quarter: 2009Q2

REPORT INFORMATION
  Report Type: 
  Country: None (occurrence: None)
  Receive Date: 20090506
  Receipt Date: 20090417
  Transmission Date: 20091009
  Serious: Yes (Other)
  Sender: FDA-Public Use
  Company Number: PHEH2007US15452

PATIENT
  Sex: Male

DRUGS (2)
  1. ZOMETA [Suspect]
     Dosage: UNK
     Route: 042
     Dates: start: 20040801
  2. KLONOPIN [Concomitant]

REACTIONS (8)
  - ANHEDONIA [None]
  - ANXIETY [None]
  - INJURY [None]
  - JAW DISORDER [None]
  - OOPHORECTOMY [None]
  - OSTEONECROSIS [None]
  - PAIN [None]
  - TOOTH EXTRACTION [None]
